APPROVED DRUG PRODUCT: MECLIZINE HYDROCHLORIDE
Active Ingredient: MECLIZINE HYDROCHLORIDE
Strength: 12.5MG
Dosage Form/Route: TABLET;ORAL
Application: A213957 | Product #001 | TE Code: AA
Applicant: ZYDUS LIFESCIENCES GLOBAL FZE
Approved: Jun 23, 2020 | RLD: No | RS: No | Type: RX